FAERS Safety Report 11502354 (Version 1)
Quarter: 2015Q3

REPORT INFORMATION
  Report Type: Spontaneous
  Country: US (occurrence: US)
  Receive Date: 20150914
  Receipt Date: 20150914
  Transmission Date: 20151125
  Serious: No
  Sender: FDA-Public Use
  Company Number: US-ASTELLAS-2015US020481

PATIENT
  Age: 63 Year
  Sex: Male

DRUGS (2)
  1. METFORMIN [Concomitant]
     Active Substance: METFORMIN HYDROCHLORIDE
     Indication: PRODUCT USED FOR UNKNOWN INDICATION
     Dosage: UNK UNK, UNKNOWN FREQ.
     Route: 065
  2. XTANDI [Suspect]
     Active Substance: ENZALUTAMIDE
     Indication: PROSTATE CANCER
     Route: 048
     Dates: start: 20150401

REACTIONS (19)
  - Vision blurred [Unknown]
  - Dysphonia [Unknown]
  - Muscular weakness [Unknown]
  - Pyrexia [Unknown]
  - Chills [Unknown]
  - Decreased appetite [Unknown]
  - Arthralgia [Unknown]
  - Sleep disorder [Unknown]
  - Weight decreased [Unknown]
  - Dizziness [Unknown]
  - Asthenia [Unknown]
  - Night sweats [Unknown]
  - Pollakiuria [Unknown]
  - Musculoskeletal stiffness [Unknown]
  - Headache [Unknown]
  - Back pain [Unknown]
  - Pain [Unknown]
  - Myalgia [Unknown]
  - Fatigue [Unknown]

NARRATIVE: CASE EVENT DATE: 201505
